FAERS Safety Report 16531759 (Version 1)
Quarter: 2019Q3

REPORT INFORMATION
  Report Type: Spontaneous
  Country: US (occurrence: US)
  Receive Date: 20190703
  Receipt Date: 20190703
  Transmission Date: 20191004
  Serious: Yes (Hospitalization)
  Sender: FDA-Public Use
  Company Number: None

PATIENT
  Age: 11 Week
  Sex: Female
  Weight: 95.85 kg

DRUGS (1)
  1. DUPIXENT [Suspect]
     Active Substance: DUPILUMAB
     Indication: ASTHMA
     Dosage: ?          OTHER FREQUENCY:600MG ONCE;?
     Route: 058
     Dates: start: 20190702, end: 20190702

REACTIONS (1)
  - Malaise [None]

NARRATIVE: CASE EVENT DATE: 20190702
